FAERS Safety Report 13315345 (Version 1)
Quarter: 2017Q1

REPORT INFORMATION
  Report Type: Spontaneous
  Country: RU (occurrence: RU)
  Receive Date: 20170309
  Receipt Date: 20170309
  Transmission Date: 20170428
  Serious: Yes (Life-Threatening)
  Sender: FDA-Public Use
  Company Number: RU-ASTRAZENECA-2017SE24698

PATIENT
  Age: 75 Year
  Sex: Male
  Weight: 89 kg

DRUGS (4)
  1. ROZUCARD [Concomitant]
  2. CONCOR [Concomitant]
     Active Substance: BISOPROLOL FUMARATE
  3. CORAXAN [Concomitant]
     Active Substance: IVABRADINE HYDROCHLORIDE
  4. BRILINTA [Suspect]
     Active Substance: TICAGRELOR
     Indication: ANGINA UNSTABLE
     Route: 048
     Dates: start: 201503

REACTIONS (3)
  - Off label use [Unknown]
  - Product use issue [Unknown]
  - Myocardial infarction [Recovered/Resolved]

NARRATIVE: CASE EVENT DATE: 2015
